FAERS Safety Report 4571233-9 (Version None)
Quarter: 2005Q1

REPORT INFORMATION
  Report Type: 
  Country: None (occurrence: None)
  Receive Date: 20050202
  Receipt Date: 20050121
  Transmission Date: 20050727
  Serious: Yes (Other)
  Sender: FDA-Public Use
  Company Number: US014612

PATIENT
  Age: 28 Year
  Sex: Female

DRUGS (1)
  1. ACTIQ [Suspect]

REACTIONS (1)
  - DRUG ABUSER [None]
